FAERS Safety Report 6288074-7 (Version None)
Quarter: 2009Q3

REPORT INFORMATION
  Report Type: 
  Country: None (occurrence: None)
  Receive Date: 20090729
  Receipt Date: 20090727
  Transmission Date: 20100115
  Serious: Yes (Death)
  Sender: FDA-Public Use
  Company Number: PHHY2009JP26933

PATIENT
  Age: 81 Year
  Sex: Male

DRUGS (5)
  1. DIOVAN HCT [Suspect]
     Indication: HYPERTENSION
     Dosage: UNK
     Route: 048
     Dates: start: 20090421
  2. PLAVIX [Concomitant]
     Dosage: 75 MG, UNK
     Route: 048
     Dates: start: 19990101
  3. PROTECADIN [Concomitant]
     Dosage: 10 MG, UNK
     Route: 048
     Dates: start: 19990101
  4. WARFARIN SODIUM [Concomitant]
     Dosage: 3 MG, UNK
     Route: 048
     Dates: start: 19990101
  5. TOLTERODINE TARTRATE [Concomitant]
     Dosage: 12 MG, UNK
     Route: 048
     Dates: start: 19990101

REACTIONS (1)
  - DEATH [None]
